FAERS Safety Report 8258285-X (Version None)
Quarter: 2012Q2

REPORT INFORMATION
  Report Type: 
  Country: None (occurrence: None)
  Receive Date: 20120404
  Receipt Date: 20120330
  Transmission Date: 20120825
  Serious: Yes (Other)
  Sender: FDA-Public Use
  Company Number: BR-BAYER-2012-031782

PATIENT
  Age: 38 Year
  Sex: Male
  Weight: 50 kg

DRUGS (5)
  1. SCOPOLAMINE [Concomitant]
     Indication: HEPATIC PAIN
     Dosage: 1 DF, BID
     Route: 048
     Dates: start: 20110801
  2. NEXAVAR [Suspect]
     Indication: HEPATIC NEOPLASM MALIGNANT
     Dosage: 400 MG, BID
     Route: 048
     Dates: start: 20110801
  3. PACO [Concomitant]
     Indication: HEPATIC PAIN
     Dosage: 1 DF, BID
     Route: 048
     Dates: start: 20110801
  4. PACO [Concomitant]
     Indication: ABDOMINAL PAIN
  5. SCOPOLAMINE [Concomitant]
     Indication: ABDOMINAL PAIN

REACTIONS (8)
  - MOOD ALTERED [None]
  - IMPATIENCE [None]
  - WEIGHT DECREASED [None]
  - FEEDING DISORDER [None]
  - DYSENTERY [None]
  - RESTLESSNESS [None]
  - IRRITABILITY [None]
  - NAUSEA [None]
